FAERS Safety Report 15244437 (Version 2)
Quarter: 2018Q3

REPORT INFORMATION
  Report Type: Report from Study
  Country: US (occurrence: US)
  Receive Date: 20180806
  Receipt Date: 20180905
  Transmission Date: 20181010
  Serious: Yes (Hospitalization, Other)
  Sender: FDA-Public Use
  Company Number: US-GILEAD-2018-0347786

PATIENT
  Age: 65 Year
  Sex: Male
  Weight: 92.63 kg

DRUGS (35)
  1. IDELALISIB [Suspect]
     Active Substance: IDELALISIB
     Dosage: 100 MG, BID
     Route: 065
     Dates: end: 20180405
  2. SYNTHROID [Concomitant]
     Active Substance: LEVOTHYROXINE SODIUM
  3. LOPRESSOR [Concomitant]
     Active Substance: METOPROLOL TARTRATE
  4. DOCQLACE [Concomitant]
     Active Substance: DOCUSATE SODIUM
  5. FOLVITE [Concomitant]
     Active Substance: FOLIC ACID
  6. COUMADIN [Concomitant]
     Active Substance: WARFARIN SODIUM
  7. LOPID [Concomitant]
     Active Substance: GEMFIBROZIL
  8. FLEXERIL [Concomitant]
     Active Substance: CYCLOBENZAPRINE HYDROCHLORIDE
  9. RITUXIMAB. [Concomitant]
     Active Substance: RITUXIMAB
     Dosage: UNK
     Route: 065
     Dates: end: 20180328
  10. ZYLOPRIM [Concomitant]
     Active Substance: ALLOPURINOL
  11. CULTURELLE [Concomitant]
     Active Substance: LACTOBACILLUS RHAMNOSUS
  12. MIRALAX [Concomitant]
     Active Substance: POLYETHYLENE GLYCOL 3350
  13. IDELALISIB [Suspect]
     Active Substance: IDELALISIB
     Indication: CHRONIC LYMPHOCYTIC LEUKAEMIA
     Dosage: UNK
     Route: 048
     Dates: start: 20160627
  14. LASIX [Concomitant]
     Active Substance: FUROSEMIDE
  15. DESYREL [Concomitant]
     Active Substance: TRAZODONE HYDROCHLORIDE
  16. THERAGRAN                          /01824401/ [Concomitant]
  17. ZOFRAN [Concomitant]
     Active Substance: ONDANSETRON HYDROCHLORIDE
  18. PROTONIX                           /00661201/ [Concomitant]
     Active Substance: OMEPRAZOLE
  19. KENALOG [Concomitant]
     Active Substance: TRIAMCINOLONE ACETONIDE
  20. IDELALISIB [Suspect]
     Active Substance: IDELALISIB
     Dosage: UNK
     Route: 048
     Dates: start: 20160718, end: 20160926
  21. VENTOLIN HFA [Concomitant]
     Active Substance: ALBUTEROL SULFATE
  22. COMPAZINE                          /00013302/ [Concomitant]
     Active Substance: PROCHLORPERAZINE EDISYLATE
  23. SODIUM CHLORIDE. [Concomitant]
     Active Substance: SODIUM CHLORIDE
  24. XANAX [Concomitant]
     Active Substance: ALPRAZOLAM
  25. HUMALOG [Concomitant]
     Active Substance: INSULIN LISPRO
  26. NEURONTIN [Concomitant]
     Active Substance: GABAPENTIN
  27. KLOR?CON [Concomitant]
     Active Substance: POTASSIUM CHLORIDE
  28. MAGNESIUM OXIDE. [Concomitant]
     Active Substance: MAGNESIUM OXIDE
  29. MEDROL [Concomitant]
     Active Substance: METHYLPREDNISOLONE
  30. THIAMINE [Concomitant]
     Active Substance: THIAMINE
  31. KEPPRA [Concomitant]
     Active Substance: LEVETIRACETAM
  32. CELEXA [Concomitant]
     Active Substance: CITALOPRAM HYDROBROMIDE
  33. MS CONTIN [Concomitant]
     Active Substance: MORPHINE SULFATE
  34. ITRACONAZOLE. [Concomitant]
     Active Substance: ITRACONAZOLE
  35. FRESH FROZEN PLASMA [Concomitant]
     Active Substance: HUMAN PLASMA

REACTIONS (17)
  - Decubitus ulcer [Unknown]
  - Asthenia [Unknown]
  - Decreased appetite [Unknown]
  - Staphylococcal bacteraemia [Unknown]
  - Rash pruritic [Recovering/Resolving]
  - Acute kidney injury [Recovered/Resolved]
  - Pneumonia [Unknown]
  - Meningitis [Unknown]
  - Anaemia [Unknown]
  - Sepsis [Unknown]
  - Bacteraemia [Unknown]
  - Sepsis [Unknown]
  - Oral candidiasis [Unknown]
  - Staphylococcal bacteraemia [Unknown]
  - Escherichia urinary tract infection [Unknown]
  - Performance status decreased [Unknown]
  - Pneumonia [Unknown]

NARRATIVE: CASE EVENT DATE: 201610
